FAERS Safety Report 11077720 (Version 1)
Quarter: 2015Q2

REPORT INFORMATION
  Report Type: Spontaneous
  Country: JP (occurrence: JP)
  Receive Date: 20150430
  Receipt Date: 20150430
  Transmission Date: 20150821
  Serious: Yes (Death)
  Sender: FDA-Public Use
  Company Number: JP-009507513-1502JPN010598

PATIENT
  Age: 79 Year
  Sex: Male

DRUGS (1)
  1. ZOLINZA [Suspect]
     Active Substance: VORINOSTAT
     Indication: MYCOSIS FUNGOIDES
     Dosage: DAILY DOSAGE UNKNOWN
     Route: 048
     Dates: start: 201409, end: 201502

REACTIONS (4)
  - Hypogammaglobulinaemia [Recovered/Resolved]
  - Disease progression [Fatal]
  - Oedema [Not Recovered/Not Resolved]
  - Blood albumin decreased [Not Recovered/Not Resolved]

NARRATIVE: CASE EVENT DATE: 201502
